FAERS Safety Report 9620815 (Version 2)
Quarter: 2013Q4

REPORT INFORMATION
  Report Type: Report from Study
  Country: DE (occurrence: DE)
  Receive Date: 20131015
  Receipt Date: 20131024
  Transmission Date: 20140711
  Serious: Yes (Hospitalization)
  Sender: FDA-Public Use
  Company Number: DE-BRISTOL-MYERS SQUIBB COMPANY-19516723

PATIENT
  Age: 63 Year
  Sex: Male
  Weight: 80 kg

DRUGS (3)
  1. CETUXIMAB [Suspect]
     Indication: HEAD AND NECK CANCER
     Route: 042
     Dates: start: 20130911
  2. CISPLATIN [Suspect]
     Indication: HEAD AND NECK CANCER
     Dosage: LAST DOSE 29MAY13
     Dates: start: 20130529
  3. FLUOROURACIL [Suspect]
     Indication: HEAD AND NECK CANCER
     Dosage: LAST DOSE 29MAY13
     Dates: start: 20130529

REACTIONS (1)
  - Syncope [Recovered/Resolved]
